FAERS Safety Report 6167849-9 (Version None)
Quarter: 2009Q2

REPORT INFORMATION
  Report Type: 
  Country: None (occurrence: None)
  Receive Date: 20090427
  Receipt Date: 20090420
  Transmission Date: 20091009
  Serious: Yes (Other)
  Sender: FDA-Public Use
  Company Number: CA-TEVA-192310USA

PATIENT
  Age: 73 Year
  Sex: Male

DRUGS (9)
  1. AMIODARONE HYDROCHLORIDE 200 MG TABLETS [Suspect]
  2. LEVOTHYROXINE SODIUM [Suspect]
  3. WARFARIN SODIUM [Suspect]
  4. ACETYLSALICYLIC ACID SRT [Suspect]
  5. FERROUS GLUCONATE [Suspect]
  6. FUROSEMIDE [Suspect]
  7. BETA ADRENERGIC RECEPTOR ANTAGONISTS (NOS) [Suspect]
  8. HMG-COA REDUCTASE INHIBITORS (NOS) [Suspect]
  9. ACE INHIBITORS (NOS) [Suspect]

REACTIONS (2)
  - COLITIS [None]
  - MESENTERIC VEIN THROMBOSIS [None]
